FAERS Safety Report 24166111 (Version 1)
Quarter: 2024Q3

REPORT INFORMATION
  Report Type: Spontaneous
  Country: GB (occurrence: GB)
  Receive Date: 20240802
  Receipt Date: 20240802
  Transmission Date: 20241017
  Serious: Yes (Other)
  Sender: TEVA
  Company Number: None

PATIENT

DRUGS (1)
  1. MIRTAZAPINE [Suspect]
     Active Substance: MIRTAZAPINE
     Route: 048
     Dates: start: 202303

REACTIONS (15)
  - Electric shock sensation [Unknown]
  - Anger [Unknown]
  - Sedation [Unknown]
  - Withdrawal syndrome [Unknown]
  - Depressed mood [Unknown]
  - Brain fog [Unknown]
  - Depression [Unknown]
  - Depersonalisation/derealisation disorder [Unknown]
  - Suicidal ideation [Unknown]
  - Anxiety [Unknown]
  - Headache [Unknown]
  - Weight increased [Unknown]
  - Akathisia [Unknown]
  - Abdominal distension [Unknown]
  - Myalgia [Unknown]
